FAERS Safety Report 6616040-8 (Version None)
Quarter: 2010Q1

REPORT INFORMATION
  Report Type: 
  Country: None (occurrence: None)
  Receive Date: 20100305
  Receipt Date: 20100224
  Transmission Date: 20100710
  Serious: Yes (Hospitalization)
  Sender: FDA-Public Use
  Company Number: B0637706A

PATIENT
  Sex: Female
  Weight: 59 kg

DRUGS (1)
  1. ZINNAT [Suspect]
     Indication: LYME DISEASE
     Dosage: 500MG PER DAY
     Route: 048
     Dates: start: 20090615, end: 20090630

REACTIONS (4)
  - ABDOMINAL PAIN [None]
  - DRUG EXPOSURE DURING PREGNANCY [None]
  - LIVE BIRTH [None]
  - NEPHROLITHIASIS [None]
